FAERS Safety Report 4497694-1 (Version None)
Quarter: 2004Q4

REPORT INFORMATION
  Report Type: 
  Country: None (occurrence: None)
  Receive Date: 20041108
  Receipt Date: 20041025
  Transmission Date: 20050328
  Serious: Yes (Hospitalization)
  Sender: FDA-Public Use
  Company Number: DE-JNJFOC-20041007713

PATIENT
  Age: 52 Year
  Sex: Female

DRUGS (3)
  1. HALDOL [Suspect]
     Indication: SCHIZOPHRENIA
     Route: 049
  2. LEPONEX [Interacting]
     Route: 049
  3. LEPONEX [Interacting]
     Indication: SCHIZOPHRENIA
     Route: 049

REACTIONS (2)
  - DRUG INTERACTION [None]
  - PAROTITIS [None]
